FAERS Safety Report 4358359-X (Version None)
Quarter: 2004Q2

REPORT INFORMATION
  Report Type: 
  Country: None (occurrence: None)
  Receive Date: 20040511
  Receipt Date: 20040427
  Transmission Date: 20050107
  Serious: Yes (Other)
  Sender: FDA-Public Use
  Company Number: 2004021969

PATIENT
  Age: 55 Year
  Sex: Male
  Weight: 84.369 kg

DRUGS (1)
  1. DILANTIN KAPSEAL [Suspect]
     Indication: EPILEPSY
     Dosage: 400 MG (QID), ORAL
     Route: 048

REACTIONS (9)
  - CHOKING [None]
  - DRY THROAT [None]
  - DYSPNOEA [None]
  - OROPHARYNGEAL SWELLING [None]
  - PHARMACEUTICAL PRODUCT COMPLAINT [None]
  - PHARYNGOLARYNGEAL PAIN [None]
  - SINUSITIS [None]
  - THROAT IRRITATION [None]
  - THROAT TIGHTNESS [None]
